FAERS Safety Report 7698782-9 (Version None)
Quarter: 2011Q3

REPORT INFORMATION
  Report Type: 
  Country: None (occurrence: None)
  Receive Date: 20110819
  Receipt Date: 20060428
  Transmission Date: 20111222
  Serious: Yes (Other)
  Sender: FDA-Public Use
  Company Number: DE-BAXTER-2011BH026435

PATIENT

DRUGS (1)
  1. CYCLOPHOSPHAMIDE [Suspect]
     Indication: IGA NEPHROPATHY
     Route: 065

REACTIONS (2)
  - PNEUMOCYSTIS JIROVECI PNEUMONIA [None]
  - RENAL IMPAIRMENT [None]
